FAERS Safety Report 4661307-6 (Version None)
Quarter: 2005Q2

REPORT INFORMATION
  Report Type: 
  Country: None (occurrence: None)
  Receive Date: 20050513
  Receipt Date: 20050504
  Transmission Date: 20051028
  Serious: Yes (Hospitalization)
  Sender: FDA-Public Use
  Company Number: US-JNJFOC-20050202033

PATIENT
  Sex: Female
  Weight: 80.74 kg

DRUGS (6)
  1. DURAGESIC-100 [Suspect]
     Route: 062
     Dates: start: 20040101
  2. PREDNISONE TAB [Concomitant]
     Route: 049
  3. PLAQUENIL [Concomitant]
     Route: 049
  4. METHOTREXATE [Concomitant]
     Route: 049
  5. PRILOSEC [Concomitant]
     Route: 049
  6. SOMA [Concomitant]
     Route: 049

REACTIONS (5)
  - APPLICATION SITE ERYTHEMA [None]
  - APPLICATION SITE IRRITATION [None]
  - APPLICATION SITE PRURITUS [None]
  - FEMUR FRACTURE [None]
  - WEIGHT DECREASED [None]
